FAERS Safety Report 5478315-8 (Version None)
Quarter: 2007Q4

REPORT INFORMATION
  Report Type: 
  Country: None (occurrence: None)
  Receive Date: 20071005
  Receipt Date: 20071003
  Transmission Date: 20080405
  Serious: Yes (Other)
  Sender: FDA-Public Use
  Company Number: A0685499A

PATIENT
  Age: 53 Year
  Sex: Female

DRUGS (1)
  1. ALLI [Suspect]
     Indication: DRUG USE FOR UNKNOWN INDICATION
     Route: 048
     Dates: start: 20070722

REACTIONS (2)
  - DYSPEPSIA [None]
  - GASTRIC DISORDER [None]
